FAERS Safety Report 18452986 (Version 1)
Quarter: 2020Q4

REPORT INFORMATION
  Report Type: Spontaneous
  Country: US (occurrence: US)
  Receive Date: 20201102
  Receipt Date: 20201102
  Transmission Date: 20210114
  Serious: Yes (Hospitalization)
  Sender: FDA-Public Use
  Company Number: None

PATIENT
  Age: 62 Year
  Sex: Female

DRUGS (20)
  1. HUMIRA [Suspect]
     Active Substance: ADALIMUMAB
     Indication: PSORIATIC ARTHROPATHY
     Dosage: ?          OTHER FREQUENCY:Q2WKS;?
     Route: 058
     Dates: start: 20200722
  2. CYCLOBENZAPRINE. [Concomitant]
     Active Substance: CYCLOBENZAPRINE
  3. DULOXETINE. [Concomitant]
     Active Substance: DULOXETINE
  4. FOLIC ACID. [Concomitant]
     Active Substance: FOLIC ACID
  5. MOVANTIK [Concomitant]
     Active Substance: NALOXEGOL OXALATE
  6. AMICDARONE [Concomitant]
  7. HYDRO/APAP [Concomitant]
     Active Substance: ACETAMINOPHEN\HYDROCODONE
  8. JARDIANCE [Concomitant]
     Active Substance: EMPAGLIFLOZIN
  9. MONTELUKAST [Concomitant]
     Active Substance: MONTELUKAST SODIUM
  10. PANTOPRAZOLE [Concomitant]
     Active Substance: PANTOPRAZOLE
  11. PRAVASTATIN. [Concomitant]
     Active Substance: PRAVASTATIN
  12. TRESIBA [Concomitant]
     Active Substance: INSULIN DEGLUDEC
  13. AZELASTINE. [Concomitant]
     Active Substance: AZELASTINE HYDROCHLORIDE
  14. METHOTREXATE. [Concomitant]
     Active Substance: METHOTREXATE
  15. BUMETANIDE. [Concomitant]
     Active Substance: BUMETANIDE
  16. SERTRALINE [Concomitant]
     Active Substance: SERTRALINE HYDROCHLORIDE
  17. METFORMIN [Concomitant]
     Active Substance: METFORMIN HYDROCHLORIDE
  18. METOLAZONE. [Concomitant]
     Active Substance: METOLAZONE
  19. POT CHLORIDE [Concomitant]
     Active Substance: POTASSIUM CHLORIDE
  20. XARELTO [Concomitant]
     Active Substance: RIVAROXABAN

REACTIONS (5)
  - Dermatitis atopic [None]
  - Rhinitis [None]
  - Chronic obstructive pulmonary disease [None]
  - Major depression [None]
  - Conjunctivitis [None]
